FAERS Safety Report 5390525-7 (Version None)
Quarter: 2007Q3

REPORT INFORMATION
  Report Type: 
  Country: None (occurrence: None)
  Receive Date: 20070718
  Receipt Date: 20061211
  Transmission Date: 20080115
  Serious: No
  Sender: FDA-Public Use
  Company Number: US-KINGPHARMUSA00001-K200601571

PATIENT

DRUGS (1)
  1. LEVOXYL [Suspect]
     Indication: BLOOD THYROID STIMULATING HORMONE DECREASED
     Dosage: 125 MCG, QD
     Route: 048
     Dates: start: 20060801

REACTIONS (1)
  - ALOPECIA [None]
